FAERS Safety Report 10041284 (Version 2)
Quarter: 2014Q2

REPORT INFORMATION
  Report Type: Spontaneous
  Country: GR (occurrence: GR)
  Receive Date: 20140327
  Receipt Date: 20140404
  Transmission Date: 20141212
  Serious: No
  Sender: FDA-Public Use
  Company Number: GR-MERCK-1403GRC009600

PATIENT
  Age: 60 Year
  Sex: Female
  Weight: 67 kg

DRUGS (2)
  1. JANUVIA [Suspect]
     Dosage: 100 MG, QAM
     Route: 048
  2. GLUCOPHAGE [Concomitant]
     Dosage: TOTAL DAILY DOSE: 1/2 TABLET AT THE NOON

REACTIONS (3)
  - Oropharyngeal pain [Unknown]
  - Pyrexia [Recovered/Resolved]
  - Speech disorder [Unknown]
